FAERS Safety Report 19994025 (Version 2)
Quarter: 2021Q4

REPORT INFORMATION
  Report Type: Spontaneous
  Country: US (occurrence: US)
  Receive Date: 20211026
  Receipt Date: 20211028
  Transmission Date: 20220303
  Serious: Yes (Other)
  Sender: FDA-Public Use
  Company Number: US-ABBVIE-21K-163-4126132-00

PATIENT
  Age: 85 Year
  Sex: Male

DRUGS (8)
  1. LUPRON [Suspect]
     Active Substance: LEUPROLIDE ACETATE
     Indication: Prostate cancer
     Route: 065
     Dates: start: 2017
  2. LUPRON [Suspect]
     Active Substance: LEUPROLIDE ACETATE
  3. LEUPROLIDE ACETATE [Suspect]
     Active Substance: LEUPROLIDE ACETATE
     Indication: Prostate cancer
     Route: 065
  4. LEUPROLIDE ACETATE [Suspect]
     Active Substance: LEUPROLIDE ACETATE
  5. APALUTAMIDE [Concomitant]
     Active Substance: APALUTAMIDE
     Indication: Prostate cancer
     Dates: start: 2019
  6. DOCETAXEL [Concomitant]
     Active Substance: DOCETAXEL
     Indication: Chemotherapy
     Dates: start: 202107, end: 202108
  7. OLAPARIB [Concomitant]
     Active Substance: OLAPARIB
     Indication: Immunomodulatory therapy
     Dates: start: 2020
  8. RADIUM [Concomitant]
     Active Substance: RADIUM
     Indication: Radiotherapy to bone
     Dates: start: 202106, end: 202107

REACTIONS (6)
  - Myelosuppression [Unknown]
  - Hepatic lesion [Unknown]
  - Bone marrow disorder [Unknown]
  - Drug intolerance [Unknown]
  - Eastern Cooperative Oncology Group performance status worsened [Unknown]
  - Asthenia [Unknown]
